FAERS Safety Report 6337670-7 (Version None)
Quarter: 2009Q3

REPORT INFORMATION
  Report Type: 
  Country: None (occurrence: None)
  Receive Date: 20090902
  Receipt Date: 20090821
  Transmission Date: 20100115
  Serious: Yes (Hospitalization)
  Sender: FDA-Public Use
  Company Number: US-ALEXION-A200900678

PATIENT
  Sex: Male

DRUGS (2)
  1. SOLIRIS [Suspect]
     Indication: PAROXYSMAL NOCTURNAL HAEMOGLOBINURIA
     Dosage: UNK
     Route: 042
  2. PREDNISONE [Concomitant]

REACTIONS (6)
  - FIBULA FRACTURE [None]
  - LOCALISED INFECTION [None]
  - PAIN [None]
  - SHOCK [None]
  - TENDON RUPTURE [None]
  - TIBIA FRACTURE [None]
